FAERS Safety Report 6419898-0 (Version None)
Quarter: 2009Q4

REPORT INFORMATION
  Report Type: 
  Country: None (occurrence: None)
  Receive Date: 20091029
  Receipt Date: 20091019
  Transmission Date: 20100525
  Serious: Yes (Other)
  Sender: FDA-Public Use
  Company Number: US-ELI_LILLY_AND_COMPANY-US200910004631

PATIENT
  Sex: Female

DRUGS (2)
  1. FORTEO [Suspect]
     Dates: start: 20090617
  2. FORTEO [Suspect]
     Dates: start: 20090617

REACTIONS (5)
  - FEELING ABNORMAL [None]
  - INJECTION SITE ERYTHEMA [None]
  - PANCREATITIS [None]
  - PULMONARY EMBOLISM [None]
  - PULMONARY INFARCTION [None]
